FAERS Safety Report 5362266-3 (Version None)
Quarter: 2007Q2

REPORT INFORMATION
  Report Type: 
  Country: None (occurrence: None)
  Receive Date: 20070619
  Receipt Date: 20070608
  Transmission Date: 20071010
  Serious: Yes (Hospitalization)
  Sender: FDA-Public Use
  Company Number: US-ELI_LILLY_AND_COMPANY-US200706001942

PATIENT
  Age: 72 Year
  Sex: Female

DRUGS (1)
  1. HUMULIN 70/30 [Suspect]
     Indication: DIABETES MELLITUS
     Dates: start: 19920101, end: 20070101

REACTIONS (5)
  - ACCIDENT [None]
  - HAEMORRHAGE [None]
  - HEAD INJURY [None]
  - HYPOACUSIS [None]
  - MONOPLEGIA [None]
